FAERS Safety Report 10516244 (Version 1)
Quarter: 2014Q3

REPORT INFORMATION
  Report Type: Spontaneous
  Country: US (occurrence: None)
  Receive Date: 20140926
  Receipt Date: 20140926
  Transmission Date: 20150326
  Serious: No
  Sender: FDA-Public Use
  Company Number: 1000069811

PATIENT
  Age: 76 Year
  Sex: Male

DRUGS (6)
  1. COZAAR (LOSARTAN POTASSIUM) (LOSARTAN POTASSIUM) [Concomitant]
  2. PRUNE [Suspect]
     Active Substance: PRUNE
  3. EYE DROPS NOS (EYE DROPS NOS) (EYE DROPS NOS) [Concomitant]
  4. AMBIEN (ZOLPIDEM TARTRATE) (ZOLPIDEM TARTRATE) [Concomitant]
  5. LINZESS [Suspect]
     Active Substance: LINACLOTIDE
     Indication: CONSTIPATION
     Dosage: 290 MCG  (290 MCG, 1 IN 1 D), ORAL
     Route: 048
     Dates: start: 2013
  6. XANAX (ALPRAZOLAM) (ALPRAZOLAM) [Concomitant]

REACTIONS (3)
  - Flatulence [None]
  - Abdominal pain [None]
  - Diarrhoea [None]

NARRATIVE: CASE EVENT DATE: 2013
